FAERS Safety Report 9190618 (Version 1)
Quarter: 2013Q1

REPORT INFORMATION
  Report Type: Spontaneous
  Country: US (occurrence: None)
  Receive Date: 20130322
  Receipt Date: 20130322
  Transmission Date: 20140127
  Serious: Yes (Other)
  Sender: FDA-Public Use
  Company Number: LMI-2013-00093

PATIENT
  Age: 22 Year
  Sex: Male
  Weight: 73.94 kg

DRUGS (5)
  1. DEFINITY [Suspect]
     Indication: ECHOCARDIOGRAM
     Dosage: 1.5 DEFINITY DILUTED WITH 8.5
     Dates: start: 20130306, end: 20130306
  2. FAMOTIDINE (FAMOTIDINE) [Concomitant]
  3. DIPHENHYDRAMINE (DIPHENHYDRAMINE) [Concomitant]
  4. LORAZEPAM (LORAZEPAM) [Concomitant]
  5. B12 (CYANOCOBALAMIN) [Concomitant]

REACTIONS (5)
  - Erythema [None]
  - Throat tightness [None]
  - Epistaxis [None]
  - Unresponsive to stimuli [None]
  - Seizure like phenomena [None]
